FAERS Safety Report 9271760 (Version 2)
Quarter: 2013Q2

REPORT INFORMATION
  Report Type: Report from Study
  Country: US (occurrence: US)
  Receive Date: 20130506
  Receipt Date: 20130530
  Transmission Date: 20140414
  Serious: Yes (Other)
  Sender: FDA-Public Use
  Company Number: US-AMGEN-USANI2013029113

PATIENT
  Age: 69 Year
  Sex: Female
  Weight: 88.44 kg

DRUGS (11)
  1. DENOSUMAB [Suspect]
     Indication: PRODUCT USED FOR UNKNOWN INDICATION
  2. XGEVA [Suspect]
     Indication: METASTASES TO BONE
  3. HYDROCODONE [Concomitant]
     Indication: PAIN
     Dosage: 10/325MG, AS NECESSARY
     Route: 048
  4. HYDROCHLOROTHIAZIDE [Concomitant]
     Dosage: UNK UNK, QD
     Route: 048
  5. NIFEREX                            /00023531/ [Concomitant]
  6. LEVOTHYROXINE [Concomitant]
  7. AXITINIB [Concomitant]
  8. NORVASC [Concomitant]
  9. FOLIC ACID [Concomitant]
     Dosage: UNK UNK, QD
     Route: 048
  10. VITAMIN C                          /00008001/ [Concomitant]
  11. DIAMOX                             /00016901/ [Concomitant]

REACTIONS (1)
  - Osteonecrosis of jaw [Recovering/Resolving]
